FAERS Safety Report 4645058-X (Version None)
Quarter: 2005Q2

REPORT INFORMATION
  Report Type: 
  Country: None (occurrence: None)
  Receive Date: 20050426
  Receipt Date: 20050419
  Transmission Date: 20051028
  Serious: Yes (Hospitalization)
  Sender: FDA-Public Use
  Company Number: US-ROCHE-402336

PATIENT
  Age: 61 Year
  Sex: Male
  Weight: 77.1 kg

DRUGS (7)
  1. INVIRASE [Suspect]
     Indication: HIV INFECTION
     Route: 048
     Dates: start: 20050328, end: 20050417
  2. NORVIR [Suspect]
     Indication: HIV INFECTION
     Route: 048
     Dates: start: 20050328, end: 20050417
  3. EPIVIR [Suspect]
     Indication: DRUG USE FOR UNKNOWN INDICATION
     Route: 048
     Dates: start: 20050328
  4. ZIAGEN [Suspect]
     Indication: DRUG USE FOR UNKNOWN INDICATION
     Route: 048
     Dates: start: 20050328
  5. VALCYTE [Concomitant]
     Dates: start: 20050328
  6. PROCRIT [Concomitant]
     Dosage: DOSAGE REGIMEN: 40,000 U SUBCUTANEOUSLY EVERY WEEK
     Route: 058
  7. NEUPOGEN [Concomitant]
     Route: 058
     Dates: start: 20050328

REACTIONS (2)
  - DIALYSIS [None]
  - RENAL FAILURE ACUTE [None]
